FAERS Safety Report 20647654 (Version 3)
Quarter: 2022Q3

REPORT INFORMATION
  Report Type: Spontaneous
  Country: IE (occurrence: IE)
  Receive Date: 20220329
  Receipt Date: 20220817
  Transmission Date: 20221027
  Serious: Yes (Hospitalization, Disabling, Other)
  Sender: FDA-Public Use
  Company Number: None

PATIENT
  Age: 14 Year
  Sex: Female

DRUGS (33)
  1. FLUOXETINE HYDROCHLORIDE [Interacting]
     Active Substance: FLUOXETINE HYDROCHLORIDE
     Indication: Depressed mood
     Dosage: 10 MG, EACH MORNING (2.5 ML OF PROZAC ORAL SOLUTION 20MG/ 5ML)
     Route: 048
     Dates: start: 20191109
  2. FLUOXETINE HYDROCHLORIDE [Interacting]
     Active Substance: FLUOXETINE HYDROCHLORIDE
     Dosage: 20 MG, UNKNOWN (PROZAC CAPSULES)
     Route: 065
     Dates: start: 20191119
  3. FLUOXETINE HYDROCHLORIDE [Interacting]
     Active Substance: FLUOXETINE HYDROCHLORIDE
     Dosage: 2 DOSAGE FORM, EACH MORNING (PROZAMEL 20MG)
     Route: 065
     Dates: start: 20200905
  4. FLUOXETINE HYDROCHLORIDE [Interacting]
     Active Substance: FLUOXETINE HYDROCHLORIDE
     Dosage: 2 DOSAGE FORM, EACH MORNING (FLUZAC 20 MG)
     Route: 065
     Dates: start: 20200519
  5. FLUOXETINE HYDROCHLORIDE [Interacting]
     Active Substance: FLUOXETINE HYDROCHLORIDE
     Dosage: 20 MG, DAILY (PROZAMEL 20MG)
     Route: 065
     Dates: start: 20201101, end: 20210828
  6. FLUOXETINE HYDROCHLORIDE [Interacting]
     Active Substance: FLUOXETINE HYDROCHLORIDE
     Dosage: 2 DOSAGE FORM, EACH MORNING (PROZAC CAPSULES 20MG)
     Route: 065
     Dates: start: 20200227
  7. FLUOXETINE HYDROCHLORIDE [Interacting]
     Active Substance: FLUOXETINE HYDROCHLORIDE
     Dosage: 30 MG, EACH MORNING (PROZAC ORAL SOLUTION 7.5ML)
     Route: 065
     Dates: start: 20191122
  8. ARIPIPRAZOLE [Interacting]
     Active Substance: ARIPIPRAZOLE
     Indication: Autism spectrum disorder
     Dosage: 5 MG, OTHER (ONE TABLET TWICE DAILY AND HALF AT NIGHT)
     Route: 065
     Dates: start: 20191109
  9. ARIPIPRAZOLE [Interacting]
     Active Substance: ARIPIPRAZOLE
     Dosage: 7.5 MG, UNKNOWN
     Route: 048
     Dates: start: 20190717
  10. ARIPIPRAZOLE [Interacting]
     Active Substance: ARIPIPRAZOLE
     Dosage: UNK UNK, UNKNOWN
     Route: 065
     Dates: start: 20200131, end: 20200519
  11. DIAZEPAM [Suspect]
     Active Substance: DIAZEPAM
     Indication: Depressed mood
     Dosage: 2MG UP TO 3 TIMES DAILY, PRN- NEARLY EVERY SCHOOL DAY
     Route: 048
     Dates: start: 20191119, end: 20200115
  12. DIAZEPAM [Suspect]
     Active Substance: DIAZEPAM
     Indication: Anxiety
  13. ALTAVITA D3 [Concomitant]
     Indication: Product used for unknown indication
     Dosage: UNK UNK, 2/M
     Dates: start: 20191204
  14. ALTAVITA D3 [Concomitant]
     Dosage: UNK UNK, MONTHLY (1/M)
     Dates: start: 20191204
  15. CLOTRIMAZOLE\HYDROCORTISONE [Concomitant]
     Active Substance: CLOTRIMAZOLE\HYDROCORTISONE
     Indication: Product used for unknown indication
     Dosage: UNK UNK, TID
     Dates: start: 20201126
  16. CLOTRIMAZOLE\HYDROCORTISONE [Concomitant]
     Active Substance: CLOTRIMAZOLE\HYDROCORTISONE
     Dosage: UNK UNK, UNKNOWN
     Dates: start: 20201030
  17. CONCERTA [Concomitant]
     Active Substance: METHYLPHENIDATE HYDROCHLORIDE
     Indication: Product used for unknown indication
     Dosage: 36 MG, EACH MORNING
     Dates: start: 20200602
  18. CONCERTA [Concomitant]
     Active Substance: METHYLPHENIDATE HYDROCHLORIDE
     Dosage: 36 MG, EACH MORNING
     Dates: start: 20200228
  19. CONCERTA [Concomitant]
     Active Substance: METHYLPHENIDATE HYDROCHLORIDE
     Dosage: 18 MG, EACH MORNING
     Dates: start: 20200124
  20. CONCERTA [Concomitant]
     Active Substance: METHYLPHENIDATE HYDROCHLORIDE
     Dosage: 27 MG, EACH MORNING
     Dates: start: 20200316
  21. MELATONIN [Concomitant]
     Active Substance: MELATONIN
     Indication: Product used for unknown indication
     Dosage: ONE OR TWO TO BE TAKEN AT NIGHT
     Route: 065
     Dates: start: 20200324
  22. MELATONIN [Concomitant]
     Active Substance: MELATONIN
     Dosage: 2 DOSAGE FORM, EACH EVENING (AT NIGHT)
     Route: 048
     Dates: start: 20191109
  23. MEFENAMIC ACID [Concomitant]
     Active Substance: MEFENAMIC ACID
     Indication: Product used for unknown indication
     Dosage: HALF OR ONE TABLET, TID
     Route: 048
     Dates: start: 20200616
  24. OLANZAPINE [Concomitant]
     Active Substance: OLANZAPINE
     Indication: Product used for unknown indication
     Dosage: 2.5MG IN THE MORNING, 5 MG AT 5PM
     Route: 048
     Dates: start: 20200630
  25. RITALIN [METHYLPHENIDATE HYDROCHLORIDE] [Concomitant]
     Indication: Product used for unknown indication
     Dosage: 10 MG, EACH EVENING
     Dates: start: 20201009
  26. RIVOTRIL [Concomitant]
     Active Substance: CLONAZEPAM
     Indication: Product used for unknown indication
     Dosage: 0.5 MG, BID
     Dates: start: 20200622
  27. SERTRALINE BLUEFISH [Concomitant]
     Indication: Product used for unknown indication
     Dosage: 50 MG, DAILY (INCREASING DOSE)
     Route: 048
     Dates: start: 20191109, end: 20191119
  28. LISDEXAMFETAMINE DIMESYLATE [Concomitant]
     Active Substance: LISDEXAMFETAMINE DIMESYLATE
     Indication: Product used for unknown indication
     Dosage: UNK UNK, EACH MORNING
     Dates: start: 20200623
  29. LISDEXAMFETAMINE DIMESYLATE [Concomitant]
     Active Substance: LISDEXAMFETAMINE DIMESYLATE
     Dosage: UNK UNK, UNKNOWN
     Dates: start: 20200722
  30. LISDEXAMFETAMINE DIMESYLATE [Concomitant]
     Active Substance: LISDEXAMFETAMINE DIMESYLATE
     Dosage: UNK UNK, UNKNOWN
     Dates: start: 20201109
  31. LISDEXAMFETAMINE DIMESYLATE [Concomitant]
     Active Substance: LISDEXAMFETAMINE DIMESYLATE
     Dosage: UNK UNK, EACH MORNING
     Dates: start: 20200710
  32. LISDEXAMFETAMINE DIMESYLATE [Concomitant]
     Active Substance: LISDEXAMFETAMINE DIMESYLATE
     Dosage: UNK UNK, UNKNOWN
     Dates: start: 20210401
  33. DROSPIRENONE [Concomitant]
     Active Substance: DROSPIRENONE
     Indication: Product used for unknown indication
     Dosage: UNK UNK, DAILY
     Dates: start: 20201030

REACTIONS (16)
  - Body dysmorphic disorder [Recovered/Resolved]
  - Weight increased [Recovered/Resolved]
  - Personality change [Recovered/Resolved]
  - Theft [Recovered/Resolved]
  - Hypersexuality [Recovered/Resolved]
  - Social anxiety disorder [Recovering/Resolving]
  - Body dysmorphic disorder [Recovered/Resolved]
  - Drug interaction [Unknown]
  - Hyperphagia [Recovered/Resolved]
  - Impulse-control disorder [Recovered/Resolved]
  - Agitation [Recovered/Resolved]
  - Intentional self-injury [Recovered/Resolved]
  - Suicidal ideation [Recovered/Resolved]
  - Oropharyngeal pain [Recovered/Resolved]
  - Nausea [Recovered/Resolved]
  - Vomiting [Recovered/Resolved]

NARRATIVE: CASE EVENT DATE: 20190901
